FAERS Safety Report 4299219-2 (Version None)
Quarter: 2004Q1

REPORT INFORMATION
  Report Type: 
  Country: None (occurrence: None)
  Receive Date: 20040217
  Receipt Date: 20040203
  Transmission Date: 20041129
  Serious: Yes (Other)
  Sender: FDA-Public Use
  Company Number: FR-JNJFOC-20040201057

PATIENT
  Sex: Male

DRUGS (1)
  1. REMICADE [Suspect]

REACTIONS (1)
  - PERICARDITIS [None]
